FAERS Safety Report 23992419 (Version 3)
Quarter: 2024Q3

REPORT INFORMATION
  Report Type: Spontaneous
  Country: JP (occurrence: JP)
  Receive Date: 20240620
  Receipt Date: 20240726
  Transmission Date: 20241017
  Serious: Yes (Other)
  Sender: NOVARTIS
  Company Number: JP-002147023-NVSJ2024JP007185

PATIENT
  Age: 86 Year
  Sex: Female

DRUGS (3)
  1. LUTATHERA [Suspect]
     Active Substance: LUTETIUM OXODOTREOTIDE LU-177
     Indication: Pancreatic neuroendocrine tumour
     Dosage: FULL DOSE
     Route: 042
     Dates: start: 20231026, end: 20231026
  2. LUTATHERA [Suspect]
     Active Substance: LUTETIUM OXODOTREOTIDE LU-177
     Dosage: HALF DOSE
     Route: 042
     Dates: start: 20240307, end: 20240307
  3. L-ARGININ-PYROGLUTAMAT + L-LYSIN [Concomitant]
     Indication: Product used for unknown indication
     Route: 042

REACTIONS (9)
  - Renal impairment [Not Recovered/Not Resolved]
  - Diabetes mellitus [Unknown]
  - Pancreatic neuroendocrine tumour [Unknown]
  - Hypoglycaemia [Unknown]
  - Malignant neoplasm progression [Unknown]
  - Hepatic function abnormal [Not Recovered/Not Resolved]
  - General physical health deterioration [Unknown]
  - Pallor [Unknown]
  - Inappropriate schedule of product administration [Unknown]

NARRATIVE: CASE EVENT DATE: 20240307
